FAERS Safety Report 6333315-0 (Version None)
Quarter: 2009Q3

REPORT INFORMATION
  Report Type: 
  Country: None (occurrence: None)
  Receive Date: 20090828
  Receipt Date: 20090824
  Transmission Date: 20100115
  Serious: Yes (Other)
  Sender: FDA-Public Use
  Company Number: CA-ROXANE LABORATORIES, INC.-2009-RO-00874RO

PATIENT

DRUGS (6)
  1. CYCLOPHOSPHAMIDE [Suspect]
     Indication: MULTIPLE SCLEROSIS
  2. CYCLOPHOSPHAMIDE [Suspect]
  3. PREDNISONE TAB [Suspect]
     Route: 048
  4. PREDNISONE TAB [Suspect]
  5. IMMUNE GLOBULIN INTRAVENOUS (HUMAN) [Concomitant]
     Route: 042
  6. METHYLPREDNISOLONE [Concomitant]
     Route: 042

REACTIONS (1)
  - OSTEOPOROSIS [None]
